FAERS Safety Report 10380888 (Version 1)
Quarter: 2014Q1

REPORT INFORMATION
  Report Type: Spontaneous
  Country: US (occurrence: None)
  Receive Date: 20140306
  Receipt Date: 20140306
  Transmission Date: 20141002
  Serious: Yes (Disabling, Other)
  Sender: FDA-Public Use
  Company Number: 163-21880-13072069

PATIENT
  Age: 60 Year
  Sex: Female

DRUGS (22)
  1. REVLIMID (LENALIDOMIDE) (25 MILLIGRAM, CAPSULES) [Suspect]
     Indication: PLASMA CELL MYELOMA
     Route: 048
     Dates: start: 201304
  2. ACIDOPHILUS (LACTOBACILLUS ACIDOPHILUS) [Concomitant]
  3. ALLOPURINOL [Concomitant]
  4. AMOXICILLIN POTASSIUM CLAVULANATE (AMOXICILLIN W/CLAVULANATE POTASSIUM) [Concomitant]
  5. ASPIR (ACETYLSALICYLIC ACID) [Concomitant]
  6. AUGMENTIN [Concomitant]
  7. COUMADIN (WARFARIN SODIUM) [Concomitant]
  8. DIAZEPAM [Concomitant]
  9. DICLOFENAC SODIUM [Concomitant]
  10. ENALAPRIL MALEATE [Concomitant]
  11. NEURONTIN (GABAPENTIN) [Concomitant]
  12. LASIX (FUROSEMIDE) [Concomitant]
  13. LOVAZA (OMEGA-3 MARINE TRIGLYCERIDES) [Concomitant]
  14. METOCLOPRAMIDE [Concomitant]
  15. MULTIVITAMINS [Concomitant]
  16. PRILOSEC (OMEPRAZOLE) [Concomitant]
  17. SYNTHROID (LEVOTHYROXINE SODIUM) [Concomitant]
  18. TYLENOL )PARACETAMOL) [Concomitant]
  19. DECADRON (DEXAMETHASONE) [Concomitant]
  20. CEFUROXIME AXETIL [Concomitant]
  21. ZITHROMAX (AZITHROMYCIN) [Concomitant]
  22. PHENYLEPHRINE [Concomitant]

REACTIONS (4)
  - Pneumonia [None]
  - Infection [None]
  - Bronchitis [None]
  - No therapeutic response [None]
